FAERS Safety Report 5832525-6 (Version None)
Quarter: 2008Q3

REPORT INFORMATION
  Report Type: 
  Country: None (occurrence: None)
  Receive Date: 20080731
  Receipt Date: 20080721
  Transmission Date: 20090109
  Serious: Yes (Death, Life-Threatening, Hospitalization)
  Sender: FDA-Public Use
  Company Number: GXKR2008NL06935

PATIENT
  Age: 80 Year
  Sex: Female

DRUGS (12)
  1. CLARITHROMYCIN [Suspect]
     Indication: PNEUMONIA
     Dosage: 500 MG, BID, ORAL
     Route: 048
     Dates: start: 20070215, end: 20070227
  2. ERYTHROMYCIN [Suspect]
     Indication: PNEUMONIA
     Dosage: 250 MG, QID, ORAL
     Route: 048
     Dates: start: 20070227
  3. SIMVASTATIN [Suspect]
     Indication: MYOCARDIAL INFARCTION
     Dosage: 40 MG, QID, ORAL
     Route: 048
     Dates: start: 20070208
  4. FUROSEMIDE [Concomitant]
  5. PANTOZOL (PANTOPRAZOLE SODIUM) TABLET [Concomitant]
  6. ACETYLSALICYLZUUR (ACETYLSALICYLIC ACID) TABLET [Concomitant]
  7. PLAVIX [Concomitant]
  8. PARACETAMOL (PARACETAMOL) TABLET [Concomitant]
  9. SELOKEEN ZOC (METOPROLOL SUCCINATE) TABLET [Concomitant]
  10. IPRATROPIUM BROMIDE W/SALBUTAMOL (IPRATROPIUM BROMIDE, SALBUTAMOL) INH [Concomitant]
  11. TEMAZEPAM [Concomitant]
  12. PAROXETINE HCL [Concomitant]

REACTIONS (3)
  - DRUG INTERACTION [None]
  - NO THERAPEUTIC RESPONSE [None]
  - RHABDOMYOLYSIS [None]
